FAERS Safety Report 15146239 (Version 1)
Quarter: 2018Q3

REPORT INFORMATION
  Report Type: Spontaneous
  Country: US (occurrence: US)
  Receive Date: 20180715
  Receipt Date: 20180715
  Transmission Date: 20181010
  Serious: No
  Sender: FDA-Public Use
  Company Number: US-ASTRAZENECA-2018SE87566

PATIENT

DRUGS (3)
  1. BUTALBITAL [Suspect]
     Active Substance: BUTALBITAL
     Route: 065
  2. DOAN^S [Concomitant]
     Indication: BACK PAIN
  3. ZOMIG [Suspect]
     Active Substance: ZOLMITRIPTAN
     Indication: MIGRAINE
     Route: 048

REACTIONS (3)
  - Off label use [Unknown]
  - Product use issue [Unknown]
  - Back pain [Unknown]
